FAERS Safety Report 15186030 (Version 1)
Quarter: 2018Q3

REPORT INFORMATION
  Report Type: Report from Study
  Country: US (occurrence: US)
  Receive Date: 20180723
  Receipt Date: 20180723
  Transmission Date: 20181010
  Serious: Yes (Death)
  Sender: FDA-Public Use
  Company Number: US-EXELIXIS-CABO-17011348

PATIENT
  Age: 60 Year
  Sex: Female

DRUGS (9)
  1. CABOMETYX [Suspect]
     Active Substance: CABOZANTINIB S-MALATE
     Indication: RENAL CANCER
     Dosage: 60 MG, QD
     Route: 048
     Dates: start: 20171028, end: 20171204
  2. PRINIVIL [Concomitant]
     Active Substance: LISINOPRIL
  3. LOVENOX [Concomitant]
     Active Substance: ENOXAPARIN SODIUM
  4. COLACE [Concomitant]
     Active Substance: DOCUSATE SODIUM
  5. VITAMIN D2 [Concomitant]
     Active Substance: ERGOCALCIFEROL
  6. MS CONTIN [Concomitant]
     Active Substance: MORPHINE SULFATE
  7. REGLAN [Concomitant]
     Active Substance: METOCLOPRAMIDE HYDROCHLORIDE
  8. NORCO [Concomitant]
     Active Substance: ACETAMINOPHEN\HYDROCODONE BITARTRATE
  9. MSIR [Concomitant]
     Active Substance: MORPHINE SULFATE

REACTIONS (20)
  - Malignant neoplasm progression [Fatal]
  - Dyspepsia [Unknown]
  - Gastrointestinal hypomotility [Unknown]
  - Dyspnoea exertional [Unknown]
  - Blood lactate dehydrogenase increased [Unknown]
  - Nausea [Unknown]
  - Dizziness [Unknown]
  - Dysgeusia [Unknown]
  - Decreased appetite [Unknown]
  - Abdominal pain upper [Unknown]
  - Pleural effusion [Unknown]
  - Oedema peripheral [Unknown]
  - Vomiting [Unknown]
  - Diarrhoea [Unknown]
  - General physical condition abnormal [Unknown]
  - Hypotension [Unknown]
  - Fatigue [Unknown]
  - Aspartate aminotransferase increased [Unknown]
  - Ascites [Unknown]
  - Arthralgia [Unknown]

NARRATIVE: CASE EVENT DATE: 201711
